FAERS Safety Report 13713130 (Version 5)
Quarter: 2020Q2

REPORT INFORMATION
  Report Type: Spontaneous
  Country: CA (occurrence: CA)
  Receive Date: 20170704
  Receipt Date: 20200424
  Transmission Date: 20200713
  Serious: Yes (Life-Threatening, Hospitalization, Other)
  Sender: FDA-Public Use
  Company Number: PHHY2017CA096926

PATIENT
  Age: 45 Year
  Sex: Female

DRUGS (82)
  1. ANTITHYMOCYTE IMMUNOGLOBULIN (RABBIT) [Suspect]
     Active Substance: LAPINE T-LYMPHOCYTE IMMUNE GLOBULIN
     Dosage: 50 MG, UNK
     Route: 005
  2. ANTITHYMOCYTE IMMUNOGLOBULIN (RABBIT) [Suspect]
     Active Substance: LAPINE T-LYMPHOCYTE IMMUNE GLOBULIN
     Dosage: 6.0 UNK
     Route: 065
  3. ANTITHYMOCYTE IMMUNOGLOBULIN (RABBIT) [Suspect]
     Active Substance: LAPINE T-LYMPHOCYTE IMMUNE GLOBULIN
     Dosage: UNK
     Route: 065
  4. CELLCEPT [Suspect]
     Active Substance: MYCOPHENOLATE MOFETIL\MYCOPHENOLATE MOFETIL HYDROCHLORIDE
     Dosage: 2000 MG, QD (1 EVERY 1 DAY)
     Route: 048
  5. ENBREL [Suspect]
     Active Substance: ETANERCEPT
     Dosage: 50 MG, QW (1 EVERY 1 WWEK)
     Route: 065
  6. PROGRAF [Suspect]
     Active Substance: TACROLIMUS
     Indication: PRODUCT USED FOR UNKNOWN INDICATION
     Dosage: 2.5 MG, QD (1 EVERY 1 DAY)
     Route: 048
  7. PROGRAF [Suspect]
     Active Substance: TACROLIMUS
     Dosage: 6 MG, QD (3 MG, 2 DF QD)
     Route: 048
  8. PROGRAF [Suspect]
     Active Substance: TACROLIMUS
     Dosage: 6 MG, QD (1 EVERY 1 DAY)
     Route: 048
  9. PROGRAF [Suspect]
     Active Substance: TACROLIMUS
     Dosage: 11.1 UNK
     Route: 065
  10. SULFASALAZINE. [Suspect]
     Active Substance: SULFASALAZINE
     Indication: PRODUCT USED FOR UNKNOWN INDICATION
     Dosage: 1 G, UNK
     Route: 065
  11. TACROLIMUS. [Suspect]
     Active Substance: TACROLIMUS
     Dosage: 6 MG, QD  (1 EVERY 1 DAY)
     Route: 048
  12. TACROLIMUS. [Suspect]
     Active Substance: TACROLIMUS
     Dosage: 4 MG, QD (2 MG, 2 EVERY 1 DAY)
     Route: 048
  13. ANTITHYMOCYTE IMMUNOGLOBULIN (RABBIT) [Suspect]
     Active Substance: LAPINE T-LYMPHOCYTE IMMUNE GLOBULIN
     Dosage: 6 MG/KG, UNK
     Route: 005
  14. ANTITHYMOCYTE IMMUNOGLOBULIN (RABBIT) [Suspect]
     Active Substance: LAPINE T-LYMPHOCYTE IMMUNE GLOBULIN
     Dosage: 50.0 UNK
     Route: 065
  15. CELLCEPT [Suspect]
     Active Substance: MYCOPHENOLATE MOFETIL\MYCOPHENOLATE MOFETIL HYDROCHLORIDE
     Indication: TRANSPLANT
     Dosage: 2000 MG, QD (1000 MG, 2 EVERY 1 DAY)
     Route: 048
  16. DACLIZUMAB [Suspect]
     Active Substance: DACLIZUMAB
     Indication: PRODUCT USED FOR UNKNOWN INDICATION
     Dosage: 5 MG, UNK
     Route: 042
  17. ENBREL [Suspect]
     Active Substance: ETANERCEPT
     Dosage: 25 MG, QD (1 EVERY 1 DAY )
     Route: 058
  18. ENBREL [Suspect]
     Active Substance: ETANERCEPT
     Dosage: 25 MG, QD (4 EVERY 1 DAY)
     Route: 048
  19. PROGRAF [Suspect]
     Active Substance: TACROLIMUS
     Indication: TRANSPLANT
     Dosage: 4 MG, QD (1 EVERY 1 DAY)
     Route: 048
  20. PROGRAF [Suspect]
     Active Substance: TACROLIMUS
     Dosage: 5 MG, QD (1 EVERY 1 DAY)
     Route: 048
  21. PROGRAF [Suspect]
     Active Substance: TACROLIMUS
     Dosage: 3 MG, Q12H
     Route: 048
  22. PROGRAF [Suspect]
     Active Substance: TACROLIMUS
     Dosage: 2.5 MG, QD (1 EVERY 1 DAY)
     Route: 048
  23. PROGRAF [Suspect]
     Active Substance: TACROLIMUS
     Dosage: 5 MG, QD (2.5 MG 2 EVERY 1 DAY)
     Route: 048
  24. PROGRAF [Suspect]
     Active Substance: TACROLIMUS
     Dosage: 2000 MG, QD (1000 MG 2 EVERY 1 DAY)
     Route: 048
  25. REMICADE [Suspect]
     Active Substance: INFLIXIMAB
     Indication: PRODUCT USED FOR UNKNOWN INDICATION
     Dosage: UNK
     Route: 042
  26. MYCOPHENOLATE MOFETIL. [Suspect]
     Active Substance: MYCOPHENOLATE MOFETIL
     Indication: TRANSPLANT
     Dosage: 1000 MG, UNK
     Route: 048
  27. TACROLIMUS. [Suspect]
     Active Substance: TACROLIMUS
     Dosage: 6 MG, QD (3 MG, 2 EVERY 1 DAY)
     Route: 048
  28. ANTITHYMOCYTE IMMUNOGLOBULIN (RABBIT) [Suspect]
     Active Substance: LAPINE T-LYMPHOCYTE IMMUNE GLOBULIN
     Dosage: 60 MG, UNK
     Route: 005
  29. ANTITHYMOCYTE IMMUNOGLOBULIN (RABBIT) [Suspect]
     Active Substance: LAPINE T-LYMPHOCYTE IMMUNE GLOBULIN
     Dosage: 6.0 UNK
     Route: 065
  30. CELLCEPT [Suspect]
     Active Substance: MYCOPHENOLATE MOFETIL\MYCOPHENOLATE MOFETIL HYDROCHLORIDE
     Indication: PRODUCT USED FOR UNKNOWN INDICATION
     Dosage: 2000 MG, QD (1 EVERY 1 DAY)
     Route: 048
  31. DACLIZUMAB [Suspect]
     Active Substance: DACLIZUMAB
     Indication: TRANSPLANT
     Dosage: 5 MG, UNK
     Route: 042
  32. ENBREL [Suspect]
     Active Substance: ETANERCEPT
     Dosage: 50 MG, QW (1 EVERY 1 WEEK)
     Route: 058
  33. PROGRAF [Suspect]
     Active Substance: TACROLIMUS
     Dosage: 22 MG, QD (2 EVERY 1 DAY)
     Route: 048
  34. PROGRAF [Suspect]
     Active Substance: TACROLIMUS
     Indication: TRANSPLANT
     Dosage: 5 MG, QD (2.5 MG, 2 EVERY 1 DAY)
     Route: 048
  35. PROGRAF [Suspect]
     Active Substance: TACROLIMUS
     Dosage: 2 MG, QD
     Route: 048
  36. RAPAMUNE [Suspect]
     Active Substance: SIROLIMUS
     Indication: TRANSPLANT
     Dosage: UNK
     Route: 065
  37. MYCOPHENOLATE MOFETIL. [Suspect]
     Active Substance: MYCOPHENOLATE MOFETIL
     Dosage: 1000 MG, QD (2 EVERY 1 DAY)
     Route: 048
  38. MYCOPHENOLATE MOFETIL. [Suspect]
     Active Substance: MYCOPHENOLATE MOFETIL
     Indication: TRANSPLANT
     Dosage: 100 MG, QD (2 EVERY 1 DAY)
     Route: 048
  39. ANTITHYMOCYTE IMMUNOGLOBULIN (RABBIT) [Suspect]
     Active Substance: LAPINE T-LYMPHOCYTE IMMUNE GLOBULIN
     Dosage: 60.0 UNK
     Route: 065
  40. ENBREL [Suspect]
     Active Substance: ETANERCEPT
     Indication: PRODUCT USED FOR UNKNOWN INDICATION
     Dosage: 25 MG, UNK
     Route: 058
  41. PROGRAF [Suspect]
     Active Substance: TACROLIMUS
     Dosage: 11.3 MG, QD(2 EVERY 1 DAY )
     Route: 048
  42. PROGRAF [Suspect]
     Active Substance: TACROLIMUS
     Dosage: 6 MG, QD
     Route: 048
  43. SULFASALAZINE. [Suspect]
     Active Substance: SULFASALAZINE
     Indication: RHEUMATOID ARTHRITIS
  44. MYCOPHENOLATE MOFETIL. [Suspect]
     Active Substance: MYCOPHENOLATE MOFETIL
     Dosage: 2000 MG, UNK
     Route: 048
  45. ANTITHYMOCYTE IMMUNOGLOBULIN (RABBIT) [Suspect]
     Active Substance: LAPINE T-LYMPHOCYTE IMMUNE GLOBULIN
     Dosage: 50.0 MG
     Route: 065
  46. ANTITHYMOCYTE IMMUNOGLOBULIN (RABBIT) [Suspect]
     Active Substance: LAPINE T-LYMPHOCYTE IMMUNE GLOBULIN
     Dosage: 6.0 MG
     Route: 065
  47. ANTITHYMOCYTE IMMUNOGLOBULIN (RABBIT) [Suspect]
     Active Substance: LAPINE T-LYMPHOCYTE IMMUNE GLOBULIN
     Dosage: 6.0 UNK
     Route: 065
  48. CELLSEPT [Suspect]
     Active Substance: MYCOPHENOLATE MOFETIL
     Dosage: 2000 MG, QD (1000 MG, 2 EVERY 1 DAY)
     Route: 048
  49. ENBREL [Suspect]
     Active Substance: ETANERCEPT
     Dosage: 50 MG, QW (1 EVERY 1 WEEK)
     Route: 048
  50. ENBREL [Suspect]
     Active Substance: ETANERCEPT
     Dosage: 50 MG, UNK
     Route: 058
  51. ENBREL [Suspect]
     Active Substance: ETANERCEPT
     Dosage: 25 MG, QW (1 EVERY 1 WEEK)
     Route: 058
  52. PROGRAF [Suspect]
     Active Substance: TACROLIMUS
     Dosage: 4 MG, QD (2 MG 2 EVERY 1 DAY)
     Route: 048
  53. PROGRAF [Suspect]
     Active Substance: TACROLIMUS
     Dosage: 4 MG, QD
     Route: 048
  54. TACROLIMUS. [Suspect]
     Active Substance: TACROLIMUS
     Indication: PRODUCT USED FOR UNKNOWN INDICATION
     Dosage: 5 MG, QD (1 EVERY 1 DAY)
     Route: 048
  55. ANTITHYMOCYTE IMMUNOGLOBULIN (RABBIT) [Suspect]
     Active Substance: LAPINE T-LYMPHOCYTE IMMUNE GLOBULIN
     Indication: TRANSPLANT
     Dosage: 60 MG/KG, UNK
     Route: 005
  56. CELLCEPT [Suspect]
     Active Substance: MYCOPHENOLATE MOFETIL\MYCOPHENOLATE MOFETIL HYDROCHLORIDE
     Dosage: 1000 MG, UNK
     Route: 048
  57. DACLIZUMAB [Suspect]
     Active Substance: DACLIZUMAB
     Indication: PRODUCT USED FOR UNKNOWN INDICATION
     Dosage: UNK
     Route: 042
  58. ENBREL [Suspect]
     Active Substance: ETANERCEPT
     Dosage: 20 MG, UNK
     Route: 058
  59. ENBREL [Suspect]
     Active Substance: ETANERCEPT
     Dosage: 50 MG, QD (1 EVERY 1 DAY)
     Route: 048
  60. ENBREL [Suspect]
     Active Substance: ETANERCEPT
     Dosage: 50 MG, QD (1 EVERY 1 DAY)
     Route: 058
  61. PROGRAF [Suspect]
     Active Substance: TACROLIMUS
     Dosage: 03 MG, QD (2 EVERY 1 DAY)
     Route: 048
  62. PROGRAF [Suspect]
     Active Substance: TACROLIMUS
     Dosage: 2 MG, QD (2 EVERY 1 DAY)
     Route: 048
  63. PROGRAF [Suspect]
     Active Substance: TACROLIMUS
     Dosage: 2.0 UNK
     Route: 065
  64. ANTITHYMOCYTE IMMUNOGLOBULIN (RABBIT) [Suspect]
     Active Substance: LAPINE T-LYMPHOCYTE IMMUNE GLOBULIN
     Indication: TRANSPLANT
     Dosage: 6 MG/KG, UNK
     Route: 005
  65. CELLSEPT [Suspect]
     Active Substance: MYCOPHENOLATE MOFETIL
     Indication: TRANSPLANT
     Dosage: 2000 MG, QD (1000 MG, 2 EVERY 1 DAY)
     Route: 048
  66. DACLIZUMAB [Suspect]
     Active Substance: DACLIZUMAB
     Indication: TRANSPLANT
     Dosage: UNK
     Route: 042
  67. ENBREL [Suspect]
     Active Substance: ETANERCEPT
     Dosage: 25 MG, QD (1 EVERY 1 DAY)
     Route: 048
  68. ENBREL [Suspect]
     Active Substance: ETANERCEPT
     Dosage: 50 MG, QD (1 EVERY 1 DAY)
     Route: 058
  69. PROGRAF [Suspect]
     Active Substance: TACROLIMUS
     Dosage: 6 MG, QD (3 MG 2 DF EVERY 1 DAY)
     Route: 048
  70. PROGRAF [Suspect]
     Active Substance: TACROLIMUS
     Dosage: 2 MG, Q12H(1 EVERY 12 HOURS)
     Route: 048
  71. PROGRAF [Suspect]
     Active Substance: TACROLIMUS
     Dosage: 06 MG, QD(1 EVERY 1 DAY)
     Route: 048
  72. PROGRAF [Suspect]
     Active Substance: TACROLIMUS
     Dosage: 02 MG, QD (1 EVERY 1 DAY)
     Route: 048
  73. PROGRAF [Suspect]
     Active Substance: TACROLIMUS
     Dosage: 2.5 MG, QD (2 EVERY 1 DAY)
     Route: 048
  74. NEORAL [Suspect]
     Active Substance: CYCLOSPORINE
     Indication: TRANSPLANT
     Dosage: UNK
     Route: 065
  75. NEORAL [Suspect]
     Active Substance: CYCLOSPORINE
     Dosage: UNK
     Route: 065
  76. MYCOPHENOLATE MOFETIL. [Suspect]
     Active Substance: MYCOPHENOLATE MOFETIL
     Dosage: 2000 MG, QD (1 EVERY1 DAY)
     Route: 048
  77. MYCOPHENOLATE MOFETIL. [Suspect]
     Active Substance: MYCOPHENOLATE MOFETIL
     Dosage: 1000 MG, QD (2 EVERY 1 DAY)
     Route: 048
  78. TACROLIMUS. [Suspect]
     Active Substance: TACROLIMUS
     Dosage: 5 MG, QD (2.5 MG , 2 EVERY 1 DAY)
     Route: 048
  79. TACROLIMUS. [Suspect]
     Active Substance: TACROLIMUS
     Indication: PRODUCT USED FOR UNKNOWN INDICATION
     Dosage: 11.1 G, UNK
     Route: 065
  80. ANTITHYMOCYTE IMMUNOGLOBULIN (RABBIT) [Suspect]
     Active Substance: LAPINE T-LYMPHOCYTE IMMUNE GLOBULIN
     Dosage: 6.0 MG
     Route: 065
  81. CELLSEPT [Suspect]
     Active Substance: MYCOPHENOLATE MOFETIL
     Dosage: 2000 MG, QD (1000 MG, 2 EVERY 1 DAY)
     Route: 048
  82. PROGRAF [Suspect]
     Active Substance: TACROLIMUS
     Indication: PRODUCT USED FOR UNKNOWN INDICATION
     Dosage: 5 MG, QD (1 EVERY 1 DAY)
     Route: 048

REACTIONS (15)
  - Alopecia [Not Recovered/Not Resolved]
  - Overdose [Unknown]
  - Acne [Not Recovered/Not Resolved]
  - Transplant rejection [Not Recovered/Not Resolved]
  - Product use issue [Not Recovered/Not Resolved]
  - Condition aggravated [Not Recovered/Not Resolved]
  - Ovarian cyst [Not Recovered/Not Resolved]
  - Rheumatoid arthritis [Not Recovered/Not Resolved]
  - Liver function test abnormal [Not Recovered/Not Resolved]
  - Sleep disorder due to general medical condition, insomnia type [Not Recovered/Not Resolved]
  - Drug ineffective [Not Recovered/Not Resolved]
  - Transplant dysfunction [Not Recovered/Not Resolved]
  - Pain [Not Recovered/Not Resolved]
  - Pneumonia [Not Recovered/Not Resolved]
  - Incorrect route of product administration [Not Recovered/Not Resolved]
